FAERS Safety Report 5669388-8 (Version None)
Quarter: 2008Q1

REPORT INFORMATION
  Report Type: 
  Country: None (occurrence: None)
  Receive Date: 20080317
  Receipt Date: 20080306
  Transmission Date: 20080703
  Serious: Yes (Hospitalization, Other)
  Sender: FDA-Public Use
  Company Number: PHRM2008FR00891

PATIENT
  Age: 70 Year
  Sex: Female
  Weight: 76 kg

DRUGS (4)
  1. NEORAL [Suspect]
     Indication: LIVER TRANSPLANT
     Dosage: 350 MG PER DAY
     Route: 048
     Dates: start: 20000726, end: 20031208
  2. SOLU-MEDROL [Concomitant]
     Indication: LIVER TRANSPLANT
     Dates: start: 20000726, end: 20000801
  3. CORTANCYL [Concomitant]
     Indication: LIVER TRANSPLANT
     Dates: start: 20000726, end: 20010722
  4. HYDROCORTISONE [Concomitant]
     Indication: LIVER TRANSPLANT
     Dates: start: 20010723, end: 20020308

REACTIONS (8)
  - ACUTE PULMONARY OEDEMA [None]
  - EPILEPSY [None]
  - GASTROENTERITIS VIRAL [None]
  - HYPOTHYROIDISM [None]
  - INTERVERTEBRAL DISC COMPRESSION [None]
  - OSTEOARTHRITIS [None]
  - RENAL FAILURE [None]
  - SCIATICA [None]
